FAERS Safety Report 7957459-2 (Version None)
Quarter: 2011Q4

REPORT INFORMATION
  Report Type: 
  Country: None (occurrence: None)
  Receive Date: 20111205
  Receipt Date: 20111202
  Transmission Date: 20120403
  Serious: Yes (Death, Hospitalization)
  Sender: FDA-Public Use
  Company Number: DE-BAYER-2011-109208

PATIENT
  Sex: Male
  Weight: 66 kg

DRUGS (3)
  1. SORAFENIB (RAF KINASE INHIBITOR) [Suspect]
     Indication: METASTATIC OCULAR MELANOMA
     Dosage: UNK
     Route: 048
     Dates: start: 20110802
  2. BLINDED SORAFENIB (RAF KINASE INHIBITOR) [Suspect]
     Indication: METASTATIC OCULAR MELANOMA
     Dosage: UNK
     Dates: start: 20110927, end: 20111103
  3. BLINDED SORAFENIB (RAF KINASE INHIBITOR) [Suspect]
     Dosage: 200 MG, UNK
     Dates: start: 20111112, end: 20111121

REACTIONS (1)
  - HEPATIC PAIN [None]
